FAERS Safety Report 7020264-8 (Version None)
Quarter: 2010Q3

REPORT INFORMATION
  Report Type: 
  Country: None (occurrence: None)
  Receive Date: 20100927
  Receipt Date: 20100914
  Transmission Date: 20110219
  Serious: Yes (Hospitalization)
  Sender: FDA-Public Use
  Company Number: UTC-001407

PATIENT
  Age: 65 Year
  Sex: Female
  Weight: 76.5 kg

DRUGS (1)
  1. TYVASO [Suspect]
     Dosage: 72 MCG (18 MCG, 4 IN 1 D), INHALATION
     Route: 055
     Dates: start: 20100301

REACTIONS (3)
  - CHEST DISCOMFORT [None]
  - FLUID RETENTION [None]
  - WRONG TECHNIQUE IN DRUG USAGE PROCESS [None]
